FAERS Safety Report 7331516-6 (Version None)
Quarter: 2011Q1

REPORT INFORMATION
  Report Type: 
  Country: None (occurrence: None)
  Receive Date: 20110228
  Receipt Date: 20110228
  Transmission Date: 20110831
  Serious: Yes (Other)
  Sender: FDA-Public Use
  Company Number: None

PATIENT

DRUGS (2)
  1. NIX [Suspect]
  2. RID MOUSSE [Suspect]

REACTIONS (1)
  - DYSPNOEA [None]
